FAERS Safety Report 4278922-4 (Version None)
Quarter: 2004Q1

REPORT INFORMATION
  Report Type: 
  Country: None (occurrence: None)
  Receive Date: 20040122
  Receipt Date: 20040106
  Transmission Date: 20041129
  Serious: Yes (Life-Threatening, Hospitalization, Disabling, Other)
  Sender: FDA-Public Use
  Company Number: WAES 00020306

PATIENT
  Age: 71 Year
  Sex: Male

DRUGS (8)
  1. VIOXX [Suspect]
     Indication: ARTHRALGIA
     Dosage: 25 MG/DAILY/PO
     Route: 048
     Dates: start: 20000114, end: 20000116
  2. VIOXX [Suspect]
     Indication: BACK PAIN
     Dosage: 25 MG/DAILY/PO
     Route: 048
     Dates: start: 20000114, end: 20000116
  3. FLOVENT [Concomitant]
  4. LIPITOR [Concomitant]
  5. PROSCAR [Concomitant]
  6. SEREVENT [Concomitant]
  7. SYMMETREL [Concomitant]
  8. PREDNISONE [Concomitant]

REACTIONS (5)
  - BURNS SECOND DEGREE [None]
  - DRUG ERUPTION [None]
  - NODULAR VASCULITIS [None]
  - STEVENS-JOHNSON SYNDROME [None]
  - TOXIC EPIDERMAL NECROLYSIS [None]
